FAERS Safety Report 9355487 (Version 1)
Quarter: 2013Q2

REPORT INFORMATION
  Report Type: Spontaneous
  Country: FR (occurrence: FR)
  Receive Date: 20130619
  Receipt Date: 20130619
  Transmission Date: 20140414
  Serious: Yes (Hospitalization, Other)
  Sender: FDA-Public Use
  Company Number: FR-PFIZER INC-2013180277

PATIENT
  Age: 69 Year
  Sex: Male

DRUGS (2)
  1. EFFEXOR LP [Suspect]
     Indication: DEPRESSION
     Dosage: 75 MG, 2X/DAY
     Route: 048
     Dates: start: 201206, end: 20130411
  2. MIRTAZAPINE [Concomitant]
     Indication: DEPRESSION
     Dosage: 20 MG DAILY
     Dates: start: 201206

REACTIONS (4)
  - Ventricular tachycardia [Recovered/Resolved]
  - Condition aggravated [Recovered/Resolved]
  - Presyncope [Recovered/Resolved]
  - Atrial fibrillation [Recovered/Resolved]
